FAERS Safety Report 21294070 (Version 2)
Quarter: 2022Q3

REPORT INFORMATION
  Report Type: Spontaneous
  Country: US (occurrence: US)
  Receive Date: 20220905
  Receipt Date: 20220922
  Transmission Date: 20221026
  Serious: No
  Sender: FDA-Public Use
  Company Number: US-BRISTOL-MYERS SQUIBB COMPANY-2022-099885

PATIENT
  Age: 68 Year
  Sex: Male

DRUGS (1)
  1. POMALYST [Suspect]
     Active Substance: POMALIDOMIDE
     Indication: Bone cancer
     Dosage: FREQ: DAILY 21 ON DAYS OFF 7
     Route: 048
     Dates: start: 202206, end: 202209

REACTIONS (3)
  - Rash [Unknown]
  - Treatment noncompliance [Unknown]
  - Intentional product use issue [Unknown]
